FAERS Safety Report 25808221 (Version 1)
Quarter: 2025Q3

REPORT INFORMATION
  Report Type: Spontaneous
  Country: US (occurrence: US)
  Receive Date: 20250916
  Receipt Date: 20250916
  Transmission Date: 20251020
  Serious: No
  Sender: CALLIDITAS THERAPEUTICS AB
  Company Number: US-Calliditas-2025CAL02800

PATIENT
  Age: 23 Year
  Sex: Female
  Weight: 61.2 kg

DRUGS (6)
  1. TARPEYO [Suspect]
     Active Substance: BUDESONIDE
     Indication: IgA nephropathy
     Route: 048
     Dates: start: 20250624
  2. LOSARTAN [Concomitant]
     Active Substance: LOSARTAN
     Indication: IgA nephropathy
  3. BUSPAR [Concomitant]
     Active Substance: BUSPIRONE HYDROCHLORIDE
     Indication: Anxiety
  4. MAGNESIUM [Concomitant]
     Active Substance: MAGNESIUM
     Indication: Muscle spasms
  5. LILETTA [Concomitant]
     Active Substance: LEVONORGESTREL
     Indication: Muscle spasms
  6. LORATADINE [Concomitant]
     Active Substance: LORATADINE
     Indication: Muscle spasms

REACTIONS (3)
  - Hypoaesthesia [Not Recovered/Not Resolved]
  - Peripheral swelling [Unknown]
  - Arthralgia [Unknown]

NARRATIVE: CASE EVENT DATE: 20250827
